FAERS Safety Report 5530223-X (Version None)
Quarter: 2007Q4

REPORT INFORMATION
  Report Type: 
  Country: None (occurrence: None)
  Receive Date: 20071127
  Receipt Date: 20071127
  Transmission Date: 20080405
  Serious: No
  Sender: FDA-Public Use
  Company Number: None

PATIENT
  Sex: Male
  Weight: 58.9676 kg

DRUGS (1)
  1. NIX [Suspect]
     Indication: LICE INFESTATION
     Dates: start: 20071010, end: 20071020

REACTIONS (2)
  - ALOPECIA [None]
  - DRUG INEFFECTIVE [None]
